FAERS Safety Report 16007721 (Version 1)
Quarter: 2019Q1

REPORT INFORMATION
  Report Type: Spontaneous
  Country: US (occurrence: US)
  Receive Date: 20190226
  Receipt Date: 20190226
  Transmission Date: 20190418
  Serious: Yes (Other)
  Sender: FDA-Public Use
  Company Number: US-PFIZER INC-2019077731

PATIENT
  Age: 70 Year
  Sex: Female
  Weight: 52.16 kg

DRUGS (3)
  1. EUCRISA [Suspect]
     Active Substance: CRISABOROLE
     Indication: DERMATITIS
     Dosage: UNK, AS NEEDED (TWICE DAILY)
     Route: 061
     Dates: start: 201812, end: 201902
  2. AMLODIPINE [Concomitant]
     Active Substance: AMLODIPINE BESYLATE
     Indication: HYPERTENSION
     Dosage: 0.5 MG, 1X/DAY
     Route: 048
  3. EUCRISA [Suspect]
     Active Substance: CRISABOROLE
     Indication: DRY SKIN

REACTIONS (4)
  - Application site pain [Recovering/Resolving]
  - Application site pruritus [Recovering/Resolving]
  - Product complaint [Unknown]
  - Application site exfoliation [Recovering/Resolving]

NARRATIVE: CASE EVENT DATE: 201812
